FAERS Safety Report 9061745 (Version 2)
Quarter: 2013Q1

REPORT INFORMATION
  Report Type: Spontaneous
  Country: US (occurrence: None)
  Receive Date: 20130122
  Receipt Date: 20130225
  Transmission Date: 20140127
  Serious: Yes (Death, Hospitalization)
  Sender: FDA-Public Use
  Company Number: CLHC20130005

PATIENT
  Age: 74 Year
  Sex: Male

DRUGS (2)
  1. COLCHICINE [Suspect]
     Indication: PRODUCT USED FOR UNKNOWN INDICATION
     Route: 048
     Dates: start: 2011, end: 2011
  2. WARFARIN [Suspect]
     Indication: PRODUCT USED FOR UNKNOWN INDICATION
     Dosage: UNKNOWN,  UNKNOWN,  ORAL?UNKNOWN  -  /  / 2011
     Route: 048
     Dates: end: 2011

REACTIONS (12)
  - Medication error [None]
  - Accidental overdose [None]
  - Nausea [None]
  - Vomiting [None]
  - Diarrhoea [None]
  - Heart rate increased [None]
  - Feeling of body temperature change [None]
  - Blood pressure increased [None]
  - Respiratory rate increased [None]
  - International normalised ratio increased [None]
  - Aspartate aminotransferase increased [None]
  - Oxygen saturation decreased [None]
